FAERS Safety Report 9003809 (Version 1)
Quarter: 2013Q1

REPORT INFORMATION
  Report Type: Spontaneous
  Country: US (occurrence: US)
  Receive Date: 20130108
  Receipt Date: 20130108
  Transmission Date: 20140127
  Serious: No
  Sender: FDA-Public Use
  Company Number: US-GLAXOSMITHKLINE-A0983981A

PATIENT
  Age: 47 Year
  Sex: Male

DRUGS (7)
  1. LOVAZA [Suspect]
     Indication: BLOOD TRIGLYCERIDES INCREASED
     Dosage: 2CAP TWICE PER DAY
     Route: 048
     Dates: start: 200903
  2. CRESTOR [Concomitant]
  3. CLARITIN [Concomitant]
  4. QUINAPRIL [Concomitant]
  5. AVEENO BATH [Concomitant]
  6. ALLOPURINOL [Concomitant]
  7. ADVIL [Concomitant]

REACTIONS (1)
  - Rash [Recovering/Resolving]
